FAERS Safety Report 10082629 (Version 1)
Quarter: 2014Q2

REPORT INFORMATION
  Report Type: Spontaneous
  Country: CA (occurrence: CA)
  Receive Date: 20140416
  Receipt Date: 20140416
  Transmission Date: 20141212
  Serious: Yes (Life-Threatening, Hospitalization)
  Sender: FDA-Public Use
  Company Number: CA-MYLANLABS-2014S1008140

PATIENT
  Age: 71 Year
  Sex: Male
  Weight: 122 kg

DRUGS (4)
  1. TRANEXAMIC ACID [Suspect]
     Indication: PROCEDURAL HAEMORRHAGE
     Dosage: (8 MG/KG), 1G LOADING DOSE
     Route: 042
  2. TRANEXAMIC ACID [Suspect]
     Indication: OFF LABEL USE
     Dosage: (8 MG/KG), 1G LOADING DOSE
     Route: 042
  3. TRANEXAMIC ACID [Suspect]
     Indication: PROCEDURAL HAEMORRHAGE
     Dosage: 0.5 G/HR (4 MG/KG/HR)
     Route: 050
  4. TRANEXAMIC ACID [Suspect]
     Indication: OFF LABEL USE
     Dosage: 0.5 G/HR (4 MG/KG/HR)
     Route: 050

REACTIONS (3)
  - Generalised tonic-clonic seizure [Recovering/Resolving]
  - Cardiac arrest [Recovering/Resolving]
  - Loss of consciousness [Recovering/Resolving]
